FAERS Safety Report 7750945-X (Version None)
Quarter: 2011Q3

REPORT INFORMATION
  Report Type: 
  Country: None (occurrence: None)
  Receive Date: 20110914
  Receipt Date: 20110902
  Transmission Date: 20111222
  Serious: Yes (Other)
  Sender: FDA-Public Use
  Company Number: US-ELI_LILLY_AND_COMPANY-US201109002011

PATIENT
  Sex: Male

DRUGS (1)
  1. HUMATROPE [Suspect]
     Dosage: 0.9 MG, SEVEN TIMES A WEEK
     Route: 058
     Dates: start: 20090101

REACTIONS (2)
  - BRAIN OEDEMA [None]
  - INTRACRANIAL PRESSURE INCREASED [None]
